FAERS Safety Report 9631576 (Version 2)
Quarter: 2013Q4

REPORT INFORMATION
  Report Type: Spontaneous
  Country: DE (occurrence: DE)
  Receive Date: 20131018
  Receipt Date: 20131018
  Transmission Date: 20140711
  Serious: Yes (Other)
  Sender: FDA-Public Use
  Company Number: DE-ASTELLAS-2013EU008211

PATIENT
  Sex: Male

DRUGS (2)
  1. XTANDI [Suspect]
     Dosage: UNK
     Route: 065
     Dates: start: 201307
  2. BISOPROLOL [Concomitant]
     Dosage: UNK
     Route: 065

REACTIONS (4)
  - Myalgia [Unknown]
  - Muscular weakness [Unknown]
  - Abdominal pain upper [Recovered/Resolved]
  - Fatigue [Unknown]
